FAERS Safety Report 15515850 (Version 3)
Quarter: 2025Q3

REPORT INFORMATION
  Report Type: Spontaneous
  Country: EU (occurrence: EU)
  Receive Date: 20181017
  Receipt Date: 20250718
  Transmission Date: 20251020
  Serious: Yes (Other)
  Sender: AUROBINDO
  Company Number: EU-AUROBINDO-AUR-APL-2018-050564

PATIENT
  Age: 55 Year
  Sex: Male

DRUGS (6)
  1. ABACAVIR [Suspect]
     Active Substance: ABACAVIR
     Indication: Acquired immunodeficiency syndrome
     Route: 065
  2. ABACAVIR [Suspect]
     Active Substance: ABACAVIR
     Indication: HIV infection
  3. ATAZANAVIR [Suspect]
     Active Substance: ATAZANAVIR
     Indication: Acquired immunodeficiency syndrome
     Route: 065
  4. ATAZANAVIR [Suspect]
     Active Substance: ATAZANAVIR
     Indication: HIV infection
  5. LAMIVUDINE [Suspect]
     Active Substance: LAMIVUDINE
     Indication: Acquired immunodeficiency syndrome
     Route: 065
  6. LAMIVUDINE [Suspect]
     Active Substance: LAMIVUDINE
     Indication: HIV infection

REACTIONS (3)
  - Melanocytic naevus [Not Recovered/Not Resolved]
  - Rash [Not Recovered/Not Resolved]
  - Immune reconstitution inflammatory syndrome [Not Recovered/Not Resolved]
